FAERS Safety Report 20412801 (Version 2)
Quarter: 2022Q1

REPORT INFORMATION
  Report Type: Spontaneous
  Country: US (occurrence: US)
  Receive Date: 20220201
  Receipt Date: 20220323
  Transmission Date: 20220424
  Serious: Yes (Hospitalization)
  Sender: FDA-Public Use
  Company Number: US-MYOVANT SCIENCES IRELAND LIMITED-2022MYSCI0100602

PATIENT
  Age: 80 Year
  Sex: Male

DRUGS (1)
  1. ORGOVYX [Suspect]
     Active Substance: RELUGOLIX
     Indication: Prostate cancer
     Dosage: 120 MILLIGRAM, QD
     Route: 048
     Dates: start: 20210719

REACTIONS (9)
  - Fall [Recovered/Resolved]
  - Confusional state [Unknown]
  - Somnolence [Unknown]
  - Nausea [Unknown]
  - Insomnia [Unknown]
  - Pain [Unknown]
  - COVID-19 [Unknown]
  - Malaise [Unknown]
  - Head injury [Unknown]

NARRATIVE: CASE EVENT DATE: 20220101
